FAERS Safety Report 14869064 (Version 2)
Quarter: 2018Q2

REPORT INFORMATION
  Report Type: Spontaneous
  Country: JP (occurrence: JP)
  Receive Date: 20180509
  Receipt Date: 20180529
  Transmission Date: 20180711
  Serious: Yes (Death)
  Sender: FDA-Public Use
  Company Number: JP-TEVA-2018-JP-889852

PATIENT
  Age: 89 Year
  Sex: Female

DRUGS (3)
  1. PREDNISOLONE. [Suspect]
     Active Substance: PREDNISOLONE
     Indication: ACQUIRED HAEMOPHILIA
     Route: 065
  2. RECOMBINANT ACTIVATED FACTOR VII [Concomitant]
     Indication: ACQUIRED HAEMOPHILIA
     Route: 065
  3. CYCLOPHOSPHAMIDE. [Suspect]
     Active Substance: CYCLOPHOSPHAMIDE
     Indication: ACQUIRED HAEMOPHILIA
     Route: 065

REACTIONS (2)
  - Pneumonia [Fatal]
  - Fungal infection [Fatal]
